FAERS Safety Report 5814965-4 (Version None)
Quarter: 2008Q3

REPORT INFORMATION
  Report Type: 
  Country: None (occurrence: None)
  Receive Date: 20080718
  Receipt Date: 20080714
  Transmission Date: 20090109
  Serious: Yes (Hospitalization)
  Sender: FDA-Public Use
  Company Number: US-AVENTIS-200814274US

PATIENT
  Sex: Female

DRUGS (2)
  1. LANTUS [Suspect]
  2. UNKNOWN DRUG [Concomitant]
     Dosage: DOSE: UNK

REACTIONS (5)
  - BLOOD GLUCOSE INCREASED [None]
  - HOT FLUSH [None]
  - HYPERHIDROSIS [None]
  - INFECTION [None]
  - PULMONARY OEDEMA [None]
